FAERS Safety Report 10596686 (Version 3)
Quarter: 2016Q4

REPORT INFORMATION
  Report Type: Spontaneous
  Country: US (occurrence: US)
  Receive Date: 20141120
  Receipt Date: 20161019
  Transmission Date: 20170206
  Serious: No
  Sender: FDA-Public Use
  Company Number: US-PFIZER INC-2014316887

PATIENT
  Age: 67 Year
  Sex: Female

DRUGS (40)
  1. PREDNISOLONE. [Suspect]
     Active Substance: PREDNISOLONE
     Dosage: UNK
  2. AVINZA [Suspect]
     Active Substance: MORPHINE SULFATE
  3. OXYCONTIN [Suspect]
     Active Substance: OXYCODONE HYDROCHLORIDE
     Dosage: UNK
  4. ECOTRIN [Suspect]
     Active Substance: ASPIRIN
     Dosage: UNK
  5. SKELAXIN [Suspect]
     Active Substance: METAXALONE
     Dosage: UNK
  6. CODEINE [Suspect]
     Active Substance: CODEINE
     Dosage: UNK
  7. LEVAQUIN [Suspect]
     Active Substance: LEVOFLOXACIN
     Dosage: UNK
  8. ALEVE [Suspect]
     Active Substance: NAPROXEN SODIUM
     Dosage: UNK
  9. NUCYNTA [Suspect]
     Active Substance: TAPENTADOL HYDROCHLORIDE
     Dosage: UNK
  10. BISACODYL. [Suspect]
     Active Substance: BISACODYL
  11. LIPITOR [Suspect]
     Active Substance: ATORVASTATIN CALCIUM
     Dosage: UNK
  12. BENADRYL [Suspect]
     Active Substance: DIPHENHYDRAMINE HYDROCHLORIDE
     Dosage: UNK
  13. WELLBUTRIN [Suspect]
     Active Substance: BUPROPION HYDROCHLORIDE
     Dosage: UNK
  14. VOLTAREN [Suspect]
     Active Substance: DICLOFENAC SODIUM
     Dosage: UNK
  15. SYMBICORT [Suspect]
     Active Substance: BUDESONIDE\FORMOTEROL FUMARATE DIHYDRATE
     Dosage: UNK
  16. CIPRO [Suspect]
     Active Substance: CIPROFLOXACIN HYDROCHLORIDE
     Dosage: UNK
  17. MACROBID [Suspect]
     Active Substance: NITROFURANTOIN\NITROFURANTOIN MONOHYDRATE
     Dosage: UNK
  18. AMOXICILLIN. [Suspect]
     Active Substance: AMOXICILLIN
     Dosage: 250 MG, UNK
  19. BACTRIM [Suspect]
     Active Substance: SULFAMETHOXAZOLE\TRIMETHOPRIM
     Dosage: UNK
  20. DECONGESTANT [Suspect]
     Active Substance: UNSPECIFIED INGREDIENT
  21. SERZONE [Suspect]
     Active Substance: NEFAZODONE HYDROCHLORIDE
     Dosage: UNK
  22. IMDUR [Suspect]
     Active Substance: ISOSORBIDE MONONITRATE
     Dosage: UNK
  23. NAPROSYN [Suspect]
     Active Substance: NAPROXEN
     Dosage: UNK
  24. PREDNISONE. [Suspect]
     Active Substance: PREDNISONE
  25. ALBUTEROL. [Suspect]
     Active Substance: ALBUTEROL
     Dosage: UNK
  26. ZOCOR [Suspect]
     Active Substance: SIMVASTATIN
     Dosage: UNK
  27. FORADIL [Suspect]
     Active Substance: FORMOTEROL FUMARATE
     Dosage: UNK
  28. MOBIC [Suspect]
     Active Substance: MELOXICAM
     Dosage: UNK
  29. SAVELLA [Suspect]
     Active Substance: MILNACIPRAN HYDROCHLORIDE
     Dosage: UNK
  30. CELEBREX [Suspect]
     Active Substance: CELECOXIB
     Dosage: UNK
  31. AZITHROMYCIN ANHYDROUS. [Suspect]
     Active Substance: AZITHROMYCIN ANHYDROUS
     Dosage: 250 MG, UNK
  32. ERYTHROMYCIN. [Suspect]
     Active Substance: ERYTHROMYCIN
     Dosage: UNK
  33. MOTRIN [Suspect]
     Active Substance: IBUPROFEN
     Dosage: UNK
  34. RITALIN [Suspect]
     Active Substance: METHYLPHENIDATE HYDROCHLORIDE
     Dosage: UNK
  35. ASPIRIN. [Suspect]
     Active Substance: ASPIRIN
     Dosage: UNK
  36. TRAMADOL. [Suspect]
     Active Substance: TRAMADOL
     Dosage: UNK
  37. MEDROL [Suspect]
     Active Substance: METHYLPREDNISOLONE
     Dosage: UNK
  38. IBUPROFEN. [Suspect]
     Active Substance: IBUPROFEN
     Dosage: UNK
  39. KEFLEX [Suspect]
     Active Substance: CEPHALEXIN
     Dosage: UNK
  40. VICODIN [Suspect]
     Active Substance: ACETAMINOPHEN\HYDROCODONE BITARTRATE
     Dosage: UNK

REACTIONS (1)
  - Drug hypersensitivity [Unknown]
